FAERS Safety Report 17865627 (Version 1)
Quarter: 2020Q2

REPORT INFORMATION
  Report Type: Spontaneous
  Country: US (occurrence: US)
  Receive Date: 20200605
  Receipt Date: 20200605
  Transmission Date: 20200714
  Serious: Yes (Death)
  Sender: FDA-Public Use
  Company Number: None

PATIENT
  Age: 80 Year
  Sex: Female
  Weight: 86.2 kg

DRUGS (13)
  1. ENOXAPARIN 80MG Q12H [Concomitant]
     Dates: start: 20200519, end: 20200524
  2. PIPERACILLIN/TAZOBACTAM 3.375G IV Q6H [Concomitant]
     Dates: start: 20200522, end: 20200524
  3. REMDESIVIR. [Suspect]
     Active Substance: REMDESIVIR
     Indication: DEPENDENCE ON RESPIRATOR
     Route: 042
     Dates: start: 20200518, end: 20200523
  4. NOREPINEPHRINE IV DRIP [Concomitant]
     Dates: start: 20200517, end: 20200524
  5. VALPROIC ACID 125MG Q6H [Concomitant]
     Dates: start: 20200515, end: 20200524
  6. REMDESIVIR. [Suspect]
     Active Substance: REMDESIVIR
     Indication: SARS-COV-2 TEST POSITIVE
     Route: 042
     Dates: start: 20200518, end: 20200523
  7. CLONAZEPAM 0.5MG Q8H [Concomitant]
     Dates: start: 20200516, end: 20200524
  8. FAMOTIDINE 20MG Q12H [Concomitant]
     Dates: start: 20200521, end: 20200524
  9. LEVOTHYROXINE 25MCG DAILY [Concomitant]
     Dates: start: 20200516, end: 20200524
  10. ACETAMINOPHEN 650MG Q4H PRN [Concomitant]
     Dates: start: 20200515, end: 20200524
  11. ROCURONIUM 50MG IVP X1 [Concomitant]
     Dates: start: 20200524
  12. INSULIN HUMAN REGULAR SLIDING SCALE [Concomitant]
     Dates: start: 20200517, end: 20200524
  13. ATORVASTATIN 10MG DAILY [Concomitant]
     Active Substance: ATORVASTATIN
     Dates: start: 20200515, end: 20200524

REACTIONS (3)
  - Respiratory arrest [None]
  - Pneumonia [None]
  - Septic shock [None]

NARRATIVE: CASE EVENT DATE: 20200524
